FAERS Safety Report 6637709-5 (Version None)
Quarter: 2010Q1

REPORT INFORMATION
  Report Type: 
  Country: None (occurrence: None)
  Receive Date: 20100315
  Receipt Date: 20100315
  Transmission Date: 20100710
  Serious: Yes (Other)
  Sender: FDA-Public Use
  Company Number: None

PATIENT

DRUGS (1)
  1. RHO(D) IMMUNE GLOBULIN NOS [Suspect]

REACTIONS (2)
  - PRODUCT LABEL CONFUSION [None]
  - PRODUCT QUALITY ISSUE [None]
